FAERS Safety Report 23874132 (Version 1)
Quarter: 2024Q2

REPORT INFORMATION
  Report Type: Spontaneous
  Country: DE (occurrence: DE)
  Receive Date: 20240520
  Receipt Date: 20240520
  Transmission Date: 20240716
  Serious: Yes (Congenital Anomaly)
  Sender: FDA-Public Use
  Company Number: DE-ANIPHARMA-2024-DE-000062

PATIENT
  Sex: Male

DRUGS (6)
  1. CANDESARTAN CILEXETIL [Suspect]
     Active Substance: CANDESARTAN CILEXETIL
     Indication: Foetal exposure during pregnancy
     Dosage: 4 MG DAILY
     Route: 050
     Dates: start: 20220701, end: 20230102
  2. FOLIC ACID [Concomitant]
     Active Substance: FOLIC ACID
     Dosage: 26.3. - 42.1. GESTATIONAL WEEK
     Route: 050
     Dates: start: 20220102, end: 20220422
  3. METHYLDOPA [Concomitant]
     Active Substance: METHYLDOPA
     Dosage: 125 MG DAILY
     Route: 050
     Dates: start: 20230102, end: 20230422
  4. IBUPROFEN [Concomitant]
     Active Substance: IBUPROFEN
     Dosage: 400 MG DAILY
     Route: 050
     Dates: start: 202211
  5. FAMTOZINAMERAN\TOZINAMERAN [Concomitant]
     Active Substance: FAMTOZINAMERAN\TOZINAMERAN
     Dosage: 3. VACCINATION/12.4. - 12.4. GESTATIONAL WEEK
     Route: 050
     Dates: start: 20220927, end: 20220927
  6. BOOSTRIX POLIO [Concomitant]
     Active Substance: DIPHTHERIA AND TETANUS TOXOIDS AND ACELLULAR PERTUSSIS ADSORBED AND INACTIVATED POLIOVIRUS VACCINE
     Dosage: 30.4. - 30.4. GESTATIONAL WEEK
     Route: 050
     Dates: start: 20230131, end: 20230131

REACTIONS (4)
  - Cranial sutures widening [Not Recovered/Not Resolved]
  - Pyelocaliectasis [Not Recovered/Not Resolved]
  - Congenital skin dimples [Not Recovered/Not Resolved]
  - Foetal exposure during pregnancy [Not Recovered/Not Resolved]
